FAERS Safety Report 4453601-9 (Version None)
Quarter: 2004Q3

REPORT INFORMATION
  Report Type: 
  Country: None (occurrence: None)
  Receive Date: 20040902
  Receipt Date: 20040523
  Transmission Date: 20050211
  Serious: No
  Sender: FDA-Public Use
  Company Number: 200417962BWH

PATIENT
  Age: 63 Year
  Sex: Male

DRUGS (2)
  1. LEVITRA [Suspect]
     Dosage: 10 MG, PRN, ORAL
     Route: 048
     Dates: start: 20040313
  2. SHERRY [Concomitant]

REACTIONS (1)
  - ERECTILE DYSFUNCTION [None]
